FAERS Safety Report 18087780 (Version 1)
Quarter: 2020Q3

REPORT INFORMATION
  Report Type: Spontaneous
  Country: US (occurrence: US)
  Receive Date: 20200729
  Receipt Date: 20200729
  Transmission Date: 20201103
  Serious: Yes (Disabling, Other)
  Sender: FDA-Public Use
  Company Number: US-PFIZER INC-2019253701

PATIENT
  Age: 40 Year
  Sex: Female

DRUGS (1)
  1. PREGABALIN. [Suspect]
     Active Substance: PREGABALIN
     Indication: RENAL TRANSPLANT
     Dosage: 1 DF, 3X/DAY
     Route: 048

REACTIONS (11)
  - Off label use [Unknown]
  - Cough [Unknown]
  - Cerebrovascular accident [Unknown]
  - Product use in unapproved indication [Unknown]
  - Conjunctivitis [Unknown]
  - Asthenia [Unknown]
  - Neuropathy peripheral [Unknown]
  - Diabetes mellitus [Unknown]
  - COVID-19 [Recovered/Resolved]
  - Laryngitis [Unknown]
  - Dyspnoea [Unknown]
